FAERS Safety Report 5052062-9 (Version None)
Quarter: 2006Q3

REPORT INFORMATION
  Report Type: 
  Country: None (occurrence: None)
  Receive Date: 20060711
  Receipt Date: 20060627
  Transmission Date: 20061208
  Serious: Yes (Other)
  Sender: FDA-Public Use
  Company Number: 8012160

PATIENT
  Age: 41 Year
  Sex: Female
  Weight: 70.5 kg

DRUGS (8)
  1. KEPPRA [Suspect]
     Indication: CONVULSION
     Dosage: 1000 MG 2/D PO
     Route: 048
     Dates: start: 20050301, end: 20050901
  2. KEPPRA [Suspect]
     Indication: EPILEPSY
     Dosage: 1000 MG 2/D PO
     Route: 048
     Dates: start: 20050301, end: 20050901
  3. KEPPRA [Suspect]
     Indication: PARTIAL SEIZURES
     Dosage: 1000 MG 2/D PO
     Route: 048
     Dates: start: 20050301, end: 20050901
  4. KEPPRA [Suspect]
     Indication: CONVULSION
     Dosage: 2250 MG 2/D PO
     Route: 048
     Dates: start: 20050901
  5. KEPPRA [Suspect]
     Indication: EPILEPSY
     Dosage: 2250 MG 2/D PO
     Route: 048
     Dates: start: 20050901
  6. KEPPRA [Suspect]
     Indication: PARTIAL SEIZURES
     Dosage: 2250 MG 2/D PO
     Route: 048
     Dates: start: 20050901
  7. ERGENYL CHRONO [Concomitant]
  8. ERGENYL CHRONO [Concomitant]

REACTIONS (5)
  - AGGRESSION [None]
  - CONVULSION [None]
  - MUSCLE SPASMS [None]
  - MUSCLE SPASTICITY [None]
  - OEDEMA [None]
